FAERS Safety Report 24398114 (Version 2)
Quarter: 2024Q4

REPORT INFORMATION
  Report Type: Spontaneous
  Country: CN (occurrence: CN)
  Receive Date: 20241004
  Receipt Date: 20241016
  Transmission Date: 20250115
  Serious: Yes (Other)
  Sender: GLAXOSMITHKLINE
  Company Number: CN-GSK-CN2024APC119999

PATIENT

DRUGS (1)
  1. VENTOLIN [Suspect]
     Active Substance: ALBUTEROL SULFATE
     Indication: Asthma
     Dosage: UNK, 20 YEARS AGO
     Route: 055

REACTIONS (3)
  - Drug dependence [Unknown]
  - Blood glucose increased [Not Recovered/Not Resolved]
  - Nervousness [Unknown]
